FAERS Safety Report 9237060 (Version 1)
Quarter: 2013Q2

REPORT INFORMATION
  Report Type: Spontaneous
  Country: GB (occurrence: GB)
  Receive Date: 20130417
  Receipt Date: 20130417
  Transmission Date: 20140414
  Serious: Yes (Other)
  Sender: FDA-Public Use
  Company Number: GB-BANPHARM-20131151

PATIENT
  Age: 56 Year
  Sex: Male

DRUGS (6)
  1. IBUPROFEN UNKNOWN PRODUCT [Suspect]
     Indication: ANALGESIC THERAPY
     Dosage: 400 MG, QID,
     Dates: start: 20061204, end: 20061214
  2. ASPIRIN [Suspect]
     Indication: CARDIOVASCULAR EVENT PROPHYLAXIS
     Dosage: 75 MG, QD,
     Route: 048
     Dates: start: 20061204, end: 20061214
  3. CODEINE PHOSPHATE [Concomitant]
     Indication: ANALGESIC THERAPY
     Dosage: 60 MG, QID,
  4. LISINOPRIL [Concomitant]
     Indication: HYPERTENSION
     Dosage: 5 MG, QID,
     Route: 048
  5. SIMVASTATIN [Concomitant]
     Indication: HYPERCHOLESTEROLAEMIA
     Dosage: 40 MG, QD,
     Route: 048
  6. TAMSULOSIN [Concomitant]
     Dosage: 40 MG, QD,
     Route: 048

REACTIONS (2)
  - Cerebral haemorrhage [Recovering/Resolving]
  - Gastric ulcer haemorrhage [Recovered/Resolved]
